FAERS Safety Report 9926962 (Version 1)
Quarter: 2014Q1

REPORT INFORMATION
  Report Type: Spontaneous
  Country: BR (occurrence: BR)
  Receive Date: 20140226
  Receipt Date: 20140226
  Transmission Date: 20141002
  Serious: Yes (Other)
  Sender: FDA-Public Use
  Company Number: PHHY2014BR021864

PATIENT
  Age: 89 Year
  Sex: Female

DRUGS (4)
  1. EXELON PATCH [Suspect]
     Indication: DEMENTIA ALZHEIMER^S TYPE
     Dosage: 9.5 MG/24 HOURS (18 MG/10CM2 DAILY)
     Route: 062
     Dates: start: 201306, end: 201401
  2. LOSARTAN [Concomitant]
     Indication: HYPERTENSION
     Dosage: 2 DF, DAILY
     Route: 048
  3. CARVEDILOL [Concomitant]
     Indication: CARDIAC FAILURE
     Dosage: 2 DF, DAILY
     Route: 048
  4. AMITRIPTYLINE [Concomitant]
     Dosage: 1 DF, DAILY
     Route: 048

REACTIONS (4)
  - Aneurysm [Not Recovered/Not Resolved]
  - Aortic arteriosclerosis [Not Recovered/Not Resolved]
  - Daydreaming [Not Recovered/Not Resolved]
  - Incorrect drug administration duration [Unknown]
